FAERS Safety Report 24184736 (Version 1)
Quarter: 2024Q3

REPORT INFORMATION
  Report Type: Spontaneous
  Country: SG (occurrence: SG)
  Receive Date: 20240807
  Receipt Date: 20240807
  Transmission Date: 20241017
  Serious: Yes (Death, Other)
  Sender: ALEXION PHARMACEUTICALS
  Company Number: SG-AstraZeneca-CH-00679553A

PATIENT
  Sex: Male
  Weight: 25 kg

DRUGS (1)
  1. SOLIRIS [Suspect]
     Active Substance: ECULIZUMAB
     Indication: Thrombotic microangiopathy
     Dosage: 600 MILLIGRAM, QW
     Route: 042
     Dates: start: 20240719

REACTIONS (4)
  - Haemophagocytic lymphohistiocytosis [Fatal]
  - Transplant failure [Unknown]
  - Sepsis [Unknown]
  - Off label use [Unknown]
